FAERS Safety Report 16752802 (Version 1)
Quarter: 2019Q3

REPORT INFORMATION
  Report Type: Report from Study
  Country: None (occurrence: GB)
  Receive Date: 20190829
  Receipt Date: 20190829
  Transmission Date: 20191005
  Serious: Yes (Hospitalization)
  Sender: FDA-Public Use
  Company Number: GB-ABBVIE-19K-167-2901684-00

PATIENT
  Age: 35 Year
  Sex: Female

DRUGS (4)
  1. CODEINE [Concomitant]
     Active Substance: CODEINE
     Indication: PRODUCT USED FOR UNKNOWN INDICATION
     Dosage: UNKNOWN
     Route: 065
  2. IMRALDI [Suspect]
     Active Substance: ADALIMUMAB
     Indication: PSORIASIS
     Route: 058
     Dates: start: 20190315
  3. NAPROXENE [Concomitant]
     Active Substance: NAPROXEN
     Indication: PRODUCT USED FOR UNKNOWN INDICATION
     Dosage: UNKNOWN
     Route: 065
  4. HUMIRA [Suspect]
     Active Substance: ADALIMUMAB
     Indication: PRODUCT USED FOR UNKNOWN INDICATION
     Route: 058

REACTIONS (12)
  - Fatigue [Unknown]
  - Stress [Unknown]
  - Mobility decreased [Unknown]
  - Anxiety [Unknown]
  - Arthralgia [Unknown]
  - Product substitution issue [Unknown]
  - Back pain [Unknown]
  - Pain in extremity [Unknown]
  - Injection site pain [Not Recovered/Not Resolved]
  - Therapeutic product effect incomplete [Unknown]
  - Neck pain [Unknown]
  - Headache [Recovered/Resolved]

NARRATIVE: CASE EVENT DATE: 2019
